FAERS Safety Report 9294439 (Version 1)
Quarter: 2013Q2

REPORT INFORMATION
  Report Type: Spontaneous
  Country: US (occurrence: None)
  Receive Date: 20130516
  Receipt Date: 20130516
  Transmission Date: 20140414
  Serious: Yes (Hospitalization)
  Sender: FDA-Public Use
  Company Number: None

PATIENT
  Age: 58 Year
  Sex: Male
  Weight: 126.1 kg

DRUGS (1)
  1. LINZESS [Suspect]
     Indication: CONSTIPATION
     Route: 048
     Dates: start: 20130426

REACTIONS (7)
  - Urticaria [None]
  - Rash [None]
  - Pruritus [None]
  - Swelling [None]
  - Rash generalised [None]
  - Heart rate increased [None]
  - Blood glucose increased [None]
